FAERS Safety Report 25402046 (Version 2)
Quarter: 2025Q2

REPORT INFORMATION
  Report Type: Spontaneous
  Country: ES (occurrence: ES)
  Receive Date: 20250605
  Receipt Date: 20250605
  Transmission Date: 20250716
  Serious: Yes (Death, Hospitalization)
  Sender: ALEXION PHARMACEUTICALS
  Company Number: None

PATIENT
  Age: 68 Year

DRUGS (3)
  1. ULTOMIRIS [Suspect]
     Active Substance: RAVULIZUMAB-CWVZ
     Dosage: 3300 MILLIGRAM, Q2W
  2. MABTHERA [Suspect]
     Active Substance: RITUXIMAB
     Indication: Immune-mediated myasthenia gravis
  3. PREDNISONE [Suspect]
     Active Substance: PREDNISONE
     Indication: Immune-mediated myasthenia gravis
     Dosage: 90 MILLIGRAM, QD

REACTIONS (3)
  - Scedosporium infection [Fatal]
  - Pneumonia pseudomonal [Fatal]
  - Device related infection [Fatal]
